FAERS Safety Report 22172431 (Version 1)
Quarter: 2023Q2

REPORT INFORMATION
  Report Type: Spontaneous
  Country: CN (occurrence: CN)
  Receive Date: 20230404
  Receipt Date: 20230404
  Transmission Date: 20230721
  Serious: Yes (Other)
  Sender: FDA-Public Use
  Company Number: CN-PFIZER INC-PV202300060070

PATIENT
  Age: 72 Year
  Sex: Female
  Weight: 58 kg

DRUGS (3)
  1. CYTARABINE [Suspect]
     Active Substance: CYTARABINE
     Indication: Acute leukaemia
     Dosage: 0.016 G, 2X/DAY
     Route: 058
     Dates: start: 20230222, end: 20230302
  2. METHYLPREDNISOLONE SODIUM SUCCINATE [Suspect]
     Active Substance: METHYLPREDNISOLONE SODIUM SUCCINATE
     Indication: Acute leukaemia
     Dosage: 40 MG, 1X/DAY
     Route: 041
     Dates: start: 20230222, end: 20230301
  3. LI BI FU [Concomitant]
     Indication: Antiemetic supportive care
     Dosage: 100 MG, 1X/DAY
     Route: 041
     Dates: start: 20230222, end: 20230227

REACTIONS (1)
  - Transaminases increased [Recovering/Resolving]

NARRATIVE: CASE EVENT DATE: 20230305
